FAERS Safety Report 9295096 (Version 1)
Quarter: 2013Q2

REPORT INFORMATION
  Report Type: Spontaneous
  Country: US (occurrence: None)
  Receive Date: 20130516
  Receipt Date: 20130516
  Transmission Date: 20140414
  Serious: Yes (Disabling, Other)
  Sender: FDA-Public Use
  Company Number: None

PATIENT
  Age: 74 Year
  Sex: Female
  Weight: 90.72 kg

DRUGS (2)
  1. VERSED [Suspect]
     Indication: SEDATION
     Route: 040
     Dates: start: 20120914, end: 20120914
  2. VERSED [Suspect]
     Indication: COLONOSCOPY
     Route: 040
     Dates: start: 20120914, end: 20120914

REACTIONS (2)
  - Memory impairment [None]
  - Educational problem [None]
